FAERS Safety Report 6214444-9 (Version None)
Quarter: 2009Q2

REPORT INFORMATION
  Report Type: 
  Country: None (occurrence: None)
  Receive Date: 20090604
  Receipt Date: 20090529
  Transmission Date: 20091009
  Serious: Yes (Other)
  Sender: FDA-Public Use
  Company Number: US-ASTRAZENECA-2008UW27390

PATIENT
  Age: 53 Year
  Sex: Female
  Weight: 90.7 kg

DRUGS (4)
  1. SEROQUEL [Suspect]
     Dosage: 200 - 400 MG
     Route: 048
     Dates: start: 20010101, end: 20080319
  2. RISPERDAL [Concomitant]
  3. ZYPREXA [Concomitant]
  4. ZOLOFT [Concomitant]
     Dates: start: 20090101

REACTIONS (5)
  - BLOOD CHOLESTEROL INCREASED [None]
  - CARDIAC DISORDER [None]
  - CARDIAC VALVE DISEASE [None]
  - PANCREATITIS [None]
  - TYPE 2 DIABETES MELLITUS [None]
